FAERS Safety Report 18691889 (Version 1)
Quarter: 2021Q1

REPORT INFORMATION
  Report Type: Spontaneous
  Country: TR (occurrence: TR)
  Receive Date: 20210102
  Receipt Date: 20210102
  Transmission Date: 20210419
  Serious: Yes (Other)
  Sender: FDA-Public Use
  Company Number: TR-LEADINGPHARMA-TR-2020LEALIT00190

PATIENT
  Age: 22 Year
  Sex: Male

DRUGS (3)
  1. MIRTAZAPINE. [Interacting]
     Active Substance: MIRTAZAPINE
     Indication: DECREASED APPETITE
  2. OXYBUTYNIN CHLORIDE TABLETS USP [Suspect]
     Active Substance: OXYBUTYNIN CHLORIDE
     Indication: ENURESIS
     Route: 065
  3. MIRTAZAPINE. [Interacting]
     Active Substance: MIRTAZAPINE
     Indication: INSOMNIA
     Route: 065

REACTIONS (3)
  - Substance use disorder [Recovered/Resolved]
  - Drug dependence [Unknown]
  - Withdrawal syndrome [Recovered/Resolved]
